FAERS Safety Report 18450209 (Version 2)
Quarter: 2020Q4

REPORT INFORMATION
  Report Type: Report from Study
  Country: JP (occurrence: JP)
  Receive Date: 20201030
  Receipt Date: 20201126
  Transmission Date: 20210114
  Serious: Yes (Life-Threatening, Other)
  Sender: FDA-Public Use
  Company Number: JP-ASTRAZENECA-2020SF40737

PATIENT
  Age: 85 Year
  Sex: Male

DRUGS (2)
  1. KEFRAL [Concomitant]
     Active Substance: CEFACLOR
     Dosage: DOSE UNKNOWN
     Route: 065
     Dates: end: 20190603
  2. TAGRISSO [Suspect]
     Active Substance: OSIMERTINIB
     Indication: NON-SMALL CELL LUNG CANCER
     Route: 048
     Dates: start: 20190409, end: 20190625

REACTIONS (1)
  - Hepatic function abnormal [Recovering/Resolving]

NARRATIVE: CASE EVENT DATE: 20190625
